FAERS Safety Report 11391442 (Version 1)
Quarter: 2015Q3

REPORT INFORMATION
  Report Type: Spontaneous
  Country: US (occurrence: None)
  Receive Date: 20150814
  Receipt Date: 20150814
  Transmission Date: 20151125
  Serious: Yes (Other)
  Sender: FDA-Public Use
  Company Number: None

PATIENT
  Age: 76 Year
  Sex: Female
  Weight: 94.8 kg

DRUGS (15)
  1. TIKOSYN [Concomitant]
     Active Substance: DOFETILIDE
  2. CARTIA XT [Concomitant]
     Active Substance: DILTIAZEM HYDROCHLORIDE
  3. SPIRONOLACTONE. [Concomitant]
     Active Substance: SPIRONOLACTONE
  4. HYDRO-EYE FISH OIL [Concomitant]
  5. COREG [Concomitant]
     Active Substance: CARVEDILOL
  6. VITAMIN C [Concomitant]
     Active Substance: ASCORBIC ACID
  7. SYNTHROID [Concomitant]
     Active Substance: LEVOTHYROXINE SODIUM
  8. CENTRUM WOMEN [Concomitant]
  9. VITAMIN D3 [Concomitant]
     Active Substance: CHOLECALCIFEROL
  10. COUMADIN [Concomitant]
     Active Substance: WARFARIN SODIUM
  11. OSCAL ULTRA D [Concomitant]
  12. CRESTOR [Concomitant]
     Active Substance: ROSUVASTATIN CALCIUM
  13. BIOTIN [Concomitant]
     Active Substance: BIOTIN
  14. TIKOSYN [Suspect]
     Active Substance: DOFETILIDE
     Indication: ATRIAL FIBRILLATION
     Route: 048
     Dates: start: 20150604, end: 20150813
  15. RESTASIS [Concomitant]
     Active Substance: CYCLOSPORINE

REACTIONS (3)
  - Thyroid disorder [None]
  - Drug interaction [None]
  - Alopecia [None]

NARRATIVE: CASE EVENT DATE: 20150813
